FAERS Safety Report 7003856-1 (Version None)
Quarter: 2010Q3

REPORT INFORMATION
  Report Type: 
  Country: None (occurrence: None)
  Receive Date: 20100917
  Receipt Date: 20090312
  Transmission Date: 20110219
  Serious: Yes (Life-Threatening, Hospitalization)
  Sender: FDA-Public Use
  Company Number: AE-2008-055

PATIENT
  Age: 76 Year
  Sex: Male
  Weight: 90.5 kg

DRUGS (7)
  1. METOPROLOL TARTRATE [Suspect]
     Indication: HYPERTENSION
     Dosage: 50 MG QD, ORAL
     Route: 048
     Dates: start: 20070701
  2. MOXONIDINE [Suspect]
     Indication: HYPERTENSION
     Dosage: 0.3 MG QD, ORAL
     Route: 048
     Dates: start: 20070701
  3. LISINOPRIL [Concomitant]
  4. AMLODIPINE [Concomitant]
  5. ACETYLSALICYLIC ACID [Concomitant]
  6. AMLODIPINE [Concomitant]
  7. SIMVASTATIN [Concomitant]

REACTIONS (5)
  - AMNESIA [None]
  - BRADYCARDIA [None]
  - DIALYSIS [None]
  - HYPERKALAEMIA [None]
  - SYNCOPE [None]
